FAERS Safety Report 8812480 (Version 1)
Quarter: 2012Q4

REPORT INFORMATION
  Report Type: Report from Study
  Country: JP (occurrence: JP)
  Receive Date: 20120927
  Receipt Date: 20120927
  Transmission Date: 20130627
  Serious: Yes (Hospitalization)
  Sender: FDA-Public Use
  Company Number: JP-VERTEX PHARMACEUTICAL INC.-2012-021780

PATIENT
  Age: 60 Year
  Sex: Male

DRUGS (3)
  1. VX-950 [Suspect]
     Indication: HEPATITIS C
     Dosage: 1500 mg, qd
     Route: 048
     Dates: start: 20120807
  2. RIBAVIRIN [Suspect]
     Indication: HEPATITIS C
     Dosage: 200 mg, UNK
     Route: 048
     Dates: start: 2006
  3. PEGINTERFERON ALFA-2B [Suspect]
     Indication: HEPATITIS C
     Dosage: 1.5 UNK, UNK
     Route: 058
     Dates: start: 2006

REACTIONS (1)
  - Pneumonia [Recovered/Resolved]
